FAERS Safety Report 8141153-1 (Version None)
Quarter: 2012Q1

REPORT INFORMATION
  Report Type: 
  Country: None (occurrence: None)
  Receive Date: 20120216
  Receipt Date: 20120213
  Transmission Date: 20120608
  Serious: Yes (Other)
  Sender: FDA-Public Use
  Company Number: US-PFIZER INC-2012038468

PATIENT
  Sex: Female
  Weight: 99.773 kg

DRUGS (4)
  1. GABAPENTIN [Suspect]
     Dosage: 600 MG, 1X/DAY
     Dates: start: 20110101
  2. GABAPENTIN [Suspect]
     Indication: BACK PAIN
     Dosage: 300 MG, 2X/DAY
     Dates: start: 20110302, end: 20110301
  3. GABAPENTIN [Suspect]
     Dosage: 600 MG, 2X/DAY
     Dates: start: 20110301, end: 20110101
  4. VITAMIN D [Concomitant]
     Dosage: 50000 UNIT, 2X/WEEK

REACTIONS (17)
  - INSOMNIA [None]
  - OEDEMA PERIPHERAL [None]
  - FIBROMYALGIA [None]
  - PAIN IN EXTREMITY [None]
  - SKIN EXFOLIATION [None]
  - PARAESTHESIA [None]
  - IMPAIRED DRIVING ABILITY [None]
  - AGGRESSION [None]
  - MOOD SWINGS [None]
  - NERVOUSNESS [None]
  - SKIN DISCOLOURATION [None]
  - PANIC ATTACK [None]
  - ANXIETY [None]
  - ANGER [None]
  - DEPRESSION [None]
  - EMOTIONAL DISORDER [None]
  - DYSGEUSIA [None]
